FAERS Safety Report 4970586-7 (Version None)
Quarter: 2006Q2

REPORT INFORMATION
  Report Type: 
  Country: None (occurrence: None)
  Receive Date: 20060412
  Receipt Date: 20060207
  Transmission Date: 20061013
  Serious: Yes (Hospitalization)
  Sender: FDA-Public Use
  Company Number: US-MERCK-0602USA01808

PATIENT
  Age: 78 Year
  Sex: Female
  Weight: 77 kg

DRUGS (1)
  1. VIOXX [Suspect]
     Indication: SPONDYLITIS
     Route: 048

REACTIONS (9)
  - ARRHYTHMIA [None]
  - ASTHENIA [None]
  - BRONCHITIS ACUTE [None]
  - BRONCHITIS CHRONIC [None]
  - CATARACT [None]
  - CEREBRAL INFARCTION [None]
  - CEREBROVASCULAR ACCIDENT [None]
  - CHRONIC OBSTRUCTIVE PULMONARY DISEASE [None]
  - MASTECTOMY [None]
